FAERS Safety Report 9395614 (Version 1)
Quarter: 2013Q3

REPORT INFORMATION
  Report Type: Spontaneous
  Country: US (occurrence: US)
  Receive Date: 20130711
  Receipt Date: 20130711
  Transmission Date: 20140515
  Serious: Yes (Other)
  Sender: FDA-Public Use
  Company Number: PHHY2013US070997

PATIENT
  Age: 35 Year
  Sex: Female

DRUGS (6)
  1. PREDNISONE [Suspect]
     Indication: INTERSTITIAL LUNG DISEASE
     Dosage: 80 MG, DAILY
  2. PREDNISONE [Suspect]
     Dosage: 5 MG, DAILY
  3. METHYLPREDNISOLONE [Suspect]
     Indication: INTERSTITIAL LUNG DISEASE
  4. MYCOPHENOLATE MOFETIL [Concomitant]
     Dosage: 1 G, DAILY
  5. MYCOPHENOLATE MOFETIL [Concomitant]
     Dosage: 2 G, DAILY
  6. AZITHROMYCIN [Concomitant]
     Indication: INTERSTITIAL LUNG DISEASE

REACTIONS (6)
  - Dermatitis acneiform [Recovered/Resolved]
  - Cushingoid [Recovered/Resolved]
  - Toxicity to various agents [Unknown]
  - Drug intolerance [Unknown]
  - Anxiety [Recovered/Resolved]
  - Restlessness [Recovered/Resolved]
